FAERS Safety Report 9383726 (Version 1)
Quarter: 2013Q3

REPORT INFORMATION
  Report Type: Spontaneous
  Country: US (occurrence: US)
  Receive Date: 20130704
  Receipt Date: 20130704
  Transmission Date: 20140515
  Serious: Yes (Life-Threatening, Hospitalization, Other)
  Sender: FDA-Public Use
  Company Number: US-ASTRAZENECA-2013SE50145

PATIENT
  Age: 48 Year
  Sex: Female
  Weight: 136.1 kg

DRUGS (9)
  1. LISINOPRIL [Suspect]
     Indication: BLOOD PRESSURE ABNORMAL
     Route: 048
  2. BRILINTA [Suspect]
     Indication: ACUTE CORONARY SYNDROME
     Route: 048
     Dates: start: 20130601
  3. ASPIRIN [Suspect]
     Dates: start: 20130601
  4. PLAVIX [Suspect]
     Indication: STENT PLACEMENT
  5. LIPITOR [Concomitant]
  6. SPIRALACTONE [Concomitant]
  7. PEPSID AC [Concomitant]
  8. ATORVASTATIN [Concomitant]
  9. CARVEDILOL [Concomitant]

REACTIONS (5)
  - Pneumonia [Unknown]
  - Cardiac arrest [Unknown]
  - Arterial restenosis [Unknown]
  - Coma [Unknown]
  - Acute coronary syndrome [Unknown]
